FAERS Safety Report 13597946 (Version 1)
Quarter: 2017Q2

REPORT INFORMATION
  Report Type: Spontaneous
  Country: FR (occurrence: FR)
  Receive Date: 20170531
  Receipt Date: 20170531
  Transmission Date: 20170830
  Serious: Yes (Life-Threatening)
  Sender: FDA-Public Use
  Company Number: FR-CLINIGEN GROUP PLC/ CLINIGEN HEALTHCARE LTD-E2B_00005593

PATIENT
  Age: 24 Year
  Sex: Female

DRUGS (13)
  1. AMIKLIN [Suspect]
     Active Substance: AMIKACIN SULFATE
     Indication: PYREXIA
     Route: 042
     Dates: start: 20110825, end: 20110828
  2. CANCIDAS [Concomitant]
     Active Substance: CASPOFUNGIN ACETATE
     Indication: CANDIDA INFECTION
     Route: 042
     Dates: start: 20110829, end: 20110906
  3. CANCIDAS [Concomitant]
     Active Substance: CASPOFUNGIN ACETATE
     Route: 042
     Dates: start: 20110920
  4. FOSCAVIR [Suspect]
     Active Substance: FOSCARNET SODIUM
     Indication: CYTOMEGALOVIRUS INFECTION
     Route: 042
     Dates: start: 20110903, end: 20110909
  5. TIENAM [Suspect]
     Active Substance: CILASTATIN SODIUM\IMIPENEM
     Route: 042
     Dates: start: 20111002
  6. VANCOCIN [Suspect]
     Active Substance: VANCOMYCIN HYDROCHLORIDE
     Indication: PYREXIA
     Route: 042
     Dates: start: 20110909, end: 20110913
  7. CYMEVAN [Suspect]
     Active Substance: GANCICLOVIR
     Indication: CYTOMEGALOVIRUS INFECTION
     Route: 042
     Dates: start: 20110830, end: 20110916
  8. IMUREL [Concomitant]
     Active Substance: AZATHIOPRINE SODIUM
     Indication: CROHN^S DISEASE
     Route: 048
     Dates: start: 20110201, end: 20110825
  9. FOSCAVIR [Suspect]
     Active Substance: FOSCARNET SODIUM
     Route: 042
     Dates: start: 20110930
  10. TAZOCILLINE [Concomitant]
     Active Substance: PIPERACILLIN SODIUM\TAZOBACTAM SODIUM
     Route: 042
     Dates: end: 20111002
  11. AMIKLIN [Suspect]
     Active Substance: AMIKACIN SULFATE
     Indication: CROHN^S DISEASE
     Route: 042
     Dates: start: 20110909
  12. TIENAM [Suspect]
     Active Substance: CILASTATIN SODIUM\IMIPENEM
     Indication: PYREXIA
     Route: 042
     Dates: start: 20110909, end: 20110918
  13. TAZOCILLINE [Concomitant]
     Active Substance: PIPERACILLIN SODIUM\TAZOBACTAM SODIUM
     Indication: PYREXIA
     Route: 042
     Dates: start: 20110825, end: 20110904

REACTIONS (6)
  - Off label use [Unknown]
  - Hepatitis [Unknown]
  - Pancytopenia [Not Recovered/Not Resolved]
  - Hepatic function abnormal [Unknown]
  - Septic shock [Unknown]
  - Acute respiratory distress syndrome [Unknown]

NARRATIVE: CASE EVENT DATE: 2011
